FAERS Safety Report 6686562-2 (Version None)
Quarter: 2010Q2

REPORT INFORMATION
  Report Type: 
  Country: None (occurrence: None)
  Receive Date: 20100414
  Receipt Date: 20100329
  Transmission Date: 20101027
  Serious: Yes (Other)
  Sender: FDA-Public Use
  Company Number: CTI_01176_2010

PATIENT
  Sex: Female

DRUGS (2)
  1. SPECTRACEF [Suspect]
     Indication: UPPER RESPIRATORY TRACT INFECTION
     Dosage: (DF), (DF)
     Dates: start: 20100328, end: 20100101
  2. SPECTRACEF [Suspect]
     Indication: UPPER RESPIRATORY TRACT INFECTION
     Dosage: (DF), (DF)
     Dates: start: 20100326, end: 20100326

REACTIONS (4)
  - GLOSSODYNIA [None]
  - LIP EXFOLIATION [None]
  - LIP SWELLING [None]
  - SWOLLEN TONGUE [None]
